FAERS Safety Report 5367724-3 (Version None)
Quarter: 2007Q2

REPORT INFORMATION
  Report Type: 
  Country: None (occurrence: None)
  Receive Date: 20070619
  Receipt Date: 20070607
  Transmission Date: 20071010
  Serious: Yes (Hospitalization)
  Sender: FDA-Public Use
  Company Number: 16777

PATIENT
  Sex: Male
  Weight: 60 kg

DRUGS (7)
  1. ACYCLOVIR [Suspect]
     Indication: HERPES ZOSTER
     Dosage: 300 MG DAILY IV
     Route: 042
     Dates: start: 20070319, end: 20070328
  2. ACYCLOVIR [Suspect]
     Indication: HERPES ZOSTER
     Dosage: 800 MG BID PO
     Route: 048
     Dates: start: 20070328, end: 20070329
  3. IRBESARTAN [Concomitant]
  4. LANSOPRAZOLE [Concomitant]
  5. PRAVASTATIN [Concomitant]
  6. SEVELAMER [Concomitant]
  7. TRANDOAPRIL [Concomitant]

REACTIONS (4)
  - ENCEPHALITIS VIRAL [None]
  - HAEMODIALYSIS [None]
  - HALLUCINATION, AUDITORY [None]
  - NEUROTOXICITY [None]
